FAERS Safety Report 15946642 (Version 1)
Quarter: 2019Q1

REPORT INFORMATION
  Report Type: Spontaneous
  Country: US (occurrence: US)
  Receive Date: 20190211
  Receipt Date: 20190211
  Transmission Date: 20190417
  Serious: Yes (Hospitalization, Other)
  Sender: FDA-Public Use
  Company Number: US-INDIVIOR LIMITED-INDV-117541-2019

PATIENT
  Sex: Female

DRUGS (1)
  1. SUBOXONE [Suspect]
     Active Substance: BUPRENORPHINE HYDROCHLORIDE\NALOXONE HYDROCHLORIDE
     Indication: PAIN
     Dosage: 18 MG (8 MG IN THE MORNING, 8 MG AT 4 PM AND A QUARTER OF AN 8 MG AT NIGHT)
     Route: 060

REACTIONS (9)
  - Contusion [Recovered/Resolved]
  - Off label use [Unknown]
  - Social anxiety disorder [Unknown]
  - Road traffic accident [Recovered/Resolved]
  - Cerebral haemorrhage [Recovered/Resolved]
  - Loss of consciousness [Recovered/Resolved]
  - Inappropriate schedule of product administration [Unknown]
  - Myelopathy [Unknown]
  - Wrong technique in product usage process [Unknown]

NARRATIVE: CASE EVENT DATE: 2018
